FAERS Safety Report 23689777 (Version 1)
Quarter: 2024Q1

REPORT INFORMATION
  Report Type: Spontaneous
  Country: US (occurrence: US)
  Receive Date: 20240331
  Receipt Date: 20240331
  Transmission Date: 20240410
  Serious: Yes (Hospitalization, Other)
  Sender: FDA-Public Use
  Company Number: US-ABBVIE-5697026

PATIENT
  Age: 57 Year
  Sex: Female

DRUGS (1)
  1. RINVOQ [Suspect]
     Active Substance: UPADACITINIB
     Indication: Product used for unknown indication
     Route: 048
     Dates: start: 2023, end: 2023

REACTIONS (12)
  - Red blood cell abnormality [Unknown]
  - Blood loss anaemia [Recovered/Resolved]
  - Anaemia macrocytic [Recovered/Resolved]
  - Asthenia [Unknown]
  - Renal impairment [Recovered/Resolved]
  - Essential hypertension [Not Recovered/Not Resolved]
  - Neuropathy peripheral [Unknown]
  - Gastrooesophageal reflux disease [Not Recovered/Not Resolved]
  - Gastrointestinal haemorrhage [Recovered/Resolved]
  - Gait inability [Unknown]
  - Chronic kidney disease [Not Recovered/Not Resolved]
  - Normochromic anaemia [Recovered/Resolved]

NARRATIVE: CASE EVENT DATE: 20230901
